FAERS Safety Report 9958372 (Version 1)
Quarter: 2014Q1

REPORT INFORMATION
  Report Type: Spontaneous
  Country: US (occurrence: US)
  Receive Date: 20140305
  Receipt Date: 20140305
  Transmission Date: 20141002
  Serious: Yes (Hospitalization, Other)
  Sender: FDA-Public Use
  Company Number: US-AMGEN-USASP2014015185

PATIENT
  Age: 55 Year
  Sex: Male

DRUGS (2)
  1. ENBREL [Suspect]
     Indication: PSORIATIC ARTHROPATHY
     Dosage: 50 MG, QWK
     Route: 065
     Dates: start: 20100413, end: 201311
  2. ENBREL [Suspect]
     Indication: PSORIASIS

REACTIONS (6)
  - Psoriatic arthropathy [Not Recovered/Not Resolved]
  - Localised infection [Recovered/Resolved]
  - Laceration [Recovered/Resolved]
  - Foot deformity [Not Recovered/Not Resolved]
  - Adverse event [Recovered/Resolved]
  - Psoriasis [Not Recovered/Not Resolved]
